FAERS Safety Report 12134908 (Version 2)
Quarter: 2016Q1

REPORT INFORMATION
  Report Type: Spontaneous
  Country: FR (occurrence: FR)
  Receive Date: 20160301
  Receipt Date: 20160303
  Transmission Date: 20160526
  Serious: Yes (Life-Threatening, Hospitalization)
  Sender: FDA-Public Use
  Company Number: FR-ABBVIE-16P-056-1572139-00

PATIENT
  Sex: Male

DRUGS (1)
  1. DEPAKINE CHRONO [Suspect]
     Active Substance: VALPROATE SODIUM
     Indication: EPILEPSY
     Route: 065
     Dates: start: 2007

REACTIONS (1)
  - Brugada syndrome [Unknown]
